FAERS Safety Report 10513690 (Version 1)
Quarter: 2014Q4

REPORT INFORMATION
  Report Type: Spontaneous
  Country: FR (occurrence: FR)
  Receive Date: 20141013
  Receipt Date: 20141013
  Transmission Date: 20150528
  Serious: Yes (Other)
  Sender: FDA-Public Use
  Company Number: FR-SA-2014SA136165

PATIENT
  Age: 88 Year
  Sex: Male
  Weight: 54 kg

DRUGS (6)
  1. DIGOXINE [Concomitant]
     Active Substance: DIGOXIN
  2. BIPRETERAX [Concomitant]
     Active Substance: INDAPAMIDE\PERINDOPRIL
  3. TEMERIT [Concomitant]
     Active Substance: NEBIVOLOL
  4. PREVISCAN [Concomitant]
     Active Substance: FLUINDIONE
  5. ARAVA [Suspect]
     Active Substance: LEFLUNOMIDE
     Indication: PSORIATIC ARTHROPATHY
     Route: 048
     Dates: start: 20080108, end: 20080110
  6. SERMION [Concomitant]
     Active Substance: NICERGOLINE

REACTIONS (3)
  - Gamma-glutamyltransferase increased [Unknown]
  - Aspartate aminotransferase increased [Unknown]
  - Alanine aminotransferase increased [Unknown]

NARRATIVE: CASE EVENT DATE: 20080110
